FAERS Safety Report 5419381-5 (Version None)
Quarter: 2007Q3

REPORT INFORMATION
  Report Type: 
  Country: None (occurrence: None)
  Receive Date: 20070816
  Receipt Date: 20070816
  Transmission Date: 20080115
  Serious: Yes (Life-Threatening, Hospitalization)
  Sender: FDA-Public Use
  Company Number: None

PATIENT
  Age: 67 Year
  Sex: Female
  Weight: 87.7 kg

DRUGS (3)
  1. ENOXAPARIN 40 MG SANOFI-AVENTIS [Suspect]
     Indication: ANTICOAGULANT THERAPY
     Dosage: 40 MG DAILY SQ
     Route: 058
     Dates: start: 20070505, end: 20070511
  2. ENOXAPARIN 40 MG SANOFI-AVENTIS [Suspect]
     Indication: THROMBOSIS PROPHYLAXIS
     Dosage: 40 MG DAILY SQ
     Route: 058
     Dates: start: 20070505, end: 20070511
  3. HEPARIN [Suspect]

REACTIONS (15)
  - ATELECTASIS [None]
  - BRADYCARDIA [None]
  - CORONARY ARTERY DISEASE [None]
  - CYANOSIS [None]
  - HEPARIN-INDUCED THROMBOCYTOPENIA [None]
  - HYPOAESTHESIA [None]
  - HYPOTENSION [None]
  - LEFT VENTRICULAR DYSFUNCTION [None]
  - PALLOR [None]
  - PERIPHERAL COLDNESS [None]
  - PLEURAL EFFUSION [None]
  - PULMONARY CONGESTION [None]
  - SENSORY LOSS [None]
  - URINE OUTPUT DECREASED [None]
  - WHITE CLOT SYNDROME [None]
